FAERS Safety Report 6962228-6 (Version None)
Quarter: 2010Q3

REPORT INFORMATION
  Report Type: 
  Country: None (occurrence: None)
  Receive Date: 20100902
  Receipt Date: 20100827
  Transmission Date: 20110219
  Serious: Yes (Other)
  Sender: FDA-Public Use
  Company Number: US-ASTRAZENECA-2007UW12096

PATIENT
  Age: 42 Year
  Sex: Male
  Weight: 94.3 kg

DRUGS (44)
  1. SEROQUEL [Suspect]
     Indication: SCHIZOPHRENIA
     Dosage: 100-1400 MG
     Route: 048
     Dates: start: 20000810
  2. SEROQUEL [Suspect]
     Indication: DEPRESSION
     Dosage: 100-1400 MG
     Route: 048
     Dates: start: 20000810
  3. SEROQUEL [Suspect]
     Indication: AGITATION
     Dosage: 100-1400 MG
     Route: 048
     Dates: start: 20000810
  4. SEROQUEL [Suspect]
     Indication: PARANOIA
     Dosage: 100-1400 MG
     Route: 048
     Dates: start: 20000810
  5. SEROQUEL [Suspect]
     Indication: INSOMNIA
     Dosage: 100-1400 MG
     Route: 048
     Dates: start: 20000810
  6. SEROQUEL [Suspect]
     Indication: AFFECTIVE DISORDER
     Dosage: 100-1400 MG
     Route: 048
     Dates: start: 20000810
  7. SEROQUEL [Suspect]
     Indication: SCHIZOPHRENIA, PARANOID TYPE
     Dosage: 100-1400 MG
     Route: 048
     Dates: start: 20000810
  8. SEROQUEL [Suspect]
     Indication: BIPOLAR DISORDER
     Dosage: 100-1400 MG
     Route: 048
     Dates: start: 20000810
  9. SEROQUEL [Suspect]
     Dosage: 600 MG TO 1200 MG
     Route: 048
     Dates: start: 20000901, end: 20060901
  10. SEROQUEL [Suspect]
     Dosage: 600 MG TO 1200 MG
     Route: 048
     Dates: start: 20000901, end: 20060901
  11. SEROQUEL [Suspect]
     Dosage: 600 MG TO 1200 MG
     Route: 048
     Dates: start: 20000901, end: 20060901
  12. SEROQUEL [Suspect]
     Dosage: 600 MG TO 1200 MG
     Route: 048
     Dates: start: 20000901, end: 20060901
  13. SEROQUEL [Suspect]
     Dosage: 600 MG TO 1200 MG
     Route: 048
     Dates: start: 20000901, end: 20060901
  14. SEROQUEL [Suspect]
     Dosage: 600 MG TO 1200 MG
     Route: 048
     Dates: start: 20000901, end: 20060901
  15. SEROQUEL [Suspect]
     Dosage: 600 MG TO 1200 MG
     Route: 048
     Dates: start: 20000901, end: 20060901
  16. SEROQUEL [Suspect]
     Dosage: 600 MG TO 1200 MG
     Route: 048
     Dates: start: 20000901, end: 20060901
  17. SEROQUEL [Suspect]
     Route: 048
     Dates: start: 20010705, end: 20060613
  18. SEROQUEL [Suspect]
     Route: 048
     Dates: start: 20010705, end: 20060613
  19. SEROQUEL [Suspect]
     Route: 048
     Dates: start: 20010705, end: 20060613
  20. SEROQUEL [Suspect]
     Route: 048
     Dates: start: 20010705, end: 20060613
  21. SEROQUEL [Suspect]
     Route: 048
     Dates: start: 20010705, end: 20060613
  22. SEROQUEL [Suspect]
     Route: 048
     Dates: start: 20010705, end: 20060613
  23. SEROQUEL [Suspect]
     Route: 048
     Dates: start: 20010705, end: 20060613
  24. SEROQUEL [Suspect]
     Route: 048
     Dates: start: 20010705, end: 20060613
  25. SIMVASTATIN [Concomitant]
     Indication: BLOOD CHOLESTEROL INCREASED
     Dosage: 10 MG HALF TAB BEDTIME
     Route: 048
     Dates: start: 20030708
  26. SIMVASTATIN [Concomitant]
     Indication: SLEEP DISORDER
     Dosage: 10 MG HALF TAB BEDTIME
     Route: 048
     Dates: start: 20030708
  27. ATENOLOL [Concomitant]
     Route: 048
     Dates: start: 20010802
  28. FOSINOPRIL SODIUM [Concomitant]
     Indication: PROTEINURIA
     Dosage: 10 MG HALF TAB, EVERY MORNING
     Route: 048
     Dates: start: 20070806
  29. TERAZOSIN HCL [Concomitant]
     Indication: DYSURIA
     Dosage: 5 MG, BEDTIME
     Route: 048
     Dates: start: 20070806
  30. TRAZODONE HCL [Concomitant]
     Indication: INSOMNIA
     Route: 048
     Dates: start: 20021001, end: 20050101
  31. TRAZODONE HCL [Concomitant]
     Dosage: 100 MG, 4-5 TABS, AT BEDTIME
     Route: 048
     Dates: start: 20070806
  32. DIVALPROEX SODIUM [Concomitant]
     Dosage: 500 MG, TWO TABLETS BY MONTH AT BEDTIME
     Route: 048
     Dates: start: 20070509
  33. DOXEPIN HCL [Concomitant]
     Indication: INSOMNIA
     Route: 048
     Dates: start: 20060701, end: 20090101
  34. DOXEPIN HCL [Concomitant]
     Dosage: 100 MG, AT BEDTIME
     Route: 048
     Dates: start: 20070509
  35. CITALOPRAM HYDROBROMIDE [Concomitant]
     Indication: DEPRESSION
     Route: 048
     Dates: start: 20030401, end: 20090101
  36. CITALOPRAM HYDROBROMIDE [Concomitant]
     Dosage: 40 MG, HALF TAB, ONCE
     Route: 048
     Dates: start: 20030620
  37. ARIPIPRAZOLE [Concomitant]
     Indication: PARANOIA
     Route: 048
     Dates: start: 20061113
  38. SILDENAFIL CITRATE [Concomitant]
     Indication: ERECTILE DYSFUNCTION
     Route: 048
     Dates: start: 20040723
  39. BUPROPION HCL [Concomitant]
     Indication: DEPRESSION
     Dosage: 75 MG FOR 7 DAYS AND THEN 2 TABS, ONCE
     Route: 048
     Dates: start: 20040723
  40. SERTRALINE HYDROCHLORIDE [Concomitant]
     Dosage: 50 MG, ONCE
     Route: 048
     Dates: start: 20010130
  41. ABILIFY [Concomitant]
     Dates: start: 20060701
  42. THORAZINE [Concomitant]
     Dates: start: 19810101, end: 19820101
  43. PALIPERIDONE [Concomitant]
     Dates: start: 20070901, end: 20090101
  44. ZIPRASIDONE HCL [Concomitant]
     Dosage: 40 TO 60 MG
     Dates: start: 20060301

REACTIONS (9)
  - BLOOD CHOLESTEROL INCREASED [None]
  - BLOOD TRIGLYCERIDES INCREASED [None]
  - DIABETIC RETINOPATHY [None]
  - HYPERLIPIDAEMIA [None]
  - HYPERPROLACTINAEMIA [None]
  - HYPOGLYCAEMIA [None]
  - OCULAR HYPERTENSION [None]
  - TYPE 1 DIABETES MELLITUS [None]
  - TYPE 2 DIABETES MELLITUS [None]
